FAERS Safety Report 10584524 (Version 1)
Quarter: 2014Q4

REPORT INFORMATION
  Report Type: Spontaneous
  Country: DE (occurrence: None)
  Receive Date: 20141112
  Receipt Date: 20141112
  Transmission Date: 20150529
  Serious: Yes (Life-Threatening, Hospitalization)
  Sender: FDA-Public Use
  Company Number: DEU-CLT-2009003

PATIENT
  Age: 8 Day
  Sex: Female

DRUGS (16)
  1. FUROSEMIDE. [Concomitant]
     Active Substance: FUROSEMIDE
  2. RANITIDINE [Concomitant]
     Active Substance: RANITIDINE\RANITIDINE HYDROCHLORIDE
  3. EPINEPHRINE. [Concomitant]
     Active Substance: EPINEPHRINE
  4. SODIUM BICARBONATE. [Concomitant]
     Active Substance: SODIUM BICARBONATE
  5. INSULIN [Concomitant]
     Active Substance: INSULIN NOS
  6. HUMAN ANTITHROMBIN III [Concomitant]
  7. LEVOCARNITINE. [Concomitant]
     Active Substance: LEVOCARNITINE
  8. PROPOFOL. [Concomitant]
     Active Substance: PROPOFOL
  9. KETAMINE [Concomitant]
     Active Substance: KETAMINE
  10. MANNITOL. [Concomitant]
     Active Substance: MANNITOL
  11. VANCOMYCIN [Concomitant]
     Active Substance: VANCOMYCIN
  12. VITAMIN K [Concomitant]
     Active Substance: PHYTONADIONE
  13. CEFAZOLIN [Concomitant]
     Active Substance: CEFAZOLIN
  14. CARBAGLU [Suspect]
     Active Substance: CARGLUMIC ACID
     Route: 048
     Dates: start: 20060419, end: 20060419
  15. FENTANYL. [Concomitant]
     Active Substance: FENTANYL
  16. RASBURICASE [Concomitant]
     Active Substance: RASBURICASE

REACTIONS (14)
  - Sepsis [None]
  - Multi-organ failure [None]
  - Peritoneal dialysis [None]
  - Protein total decreased [None]
  - Blood calcium decreased [None]
  - Pruritus [None]
  - Hypotension [None]
  - Alanine aminotransferase increased [None]
  - Aspartate aminotransferase increased [None]
  - Acidosis [None]
  - Gamma-glutamyltransferase [None]
  - Renal failure [None]
  - Blood lactate dehydrogenase increased [None]
  - Blood potassium decreased [None]

NARRATIVE: CASE EVENT DATE: 20060420
